FAERS Safety Report 25024721 (Version 1)
Quarter: 2025Q1

REPORT INFORMATION
  Report Type: Spontaneous
  Country: US (occurrence: US)
  Receive Date: 20250228
  Receipt Date: 20250228
  Transmission Date: 20250408
  Serious: No
  Sender: MYLAN
  Company Number: US-MYLANLABS-2025M1015447

PATIENT
  Sex: Female
  Weight: 55.79 kg

DRUGS (4)
  1. ESTRADIOL [Suspect]
     Active Substance: ESTRADIOL
     Indication: Menopausal symptoms
     Dosage: 1 PERCENT, Q2W (2 TIMES A WEEK)
  2. ESTRADIOL [Suspect]
     Active Substance: ESTRADIOL
     Dosage: 1 PERCENT, Q2W (2 TIMES A WEEK)
     Route: 067
  3. ESTRADIOL [Suspect]
     Active Substance: ESTRADIOL
     Dosage: 1 PERCENT, Q2W (2 TIMES A WEEK)
     Route: 067
  4. ESTRADIOL [Suspect]
     Active Substance: ESTRADIOL
     Dosage: 1 PERCENT, Q2W (2 TIMES A WEEK)

REACTIONS (3)
  - Vulvovaginal pruritus [Unknown]
  - Vulvovaginal erythema [Unknown]
  - Vulvovaginal discomfort [Unknown]
